FAERS Safety Report 8251317-4 (Version None)
Quarter: 2012Q2

REPORT INFORMATION
  Report Type: 
  Country: None (occurrence: None)
  Receive Date: 20120402
  Receipt Date: 20110610
  Transmission Date: 20120825
  Serious: Yes (Other)
  Sender: FDA-Public Use
  Company Number: US-GLAXOSMITHKLINE-A0934202A

PATIENT
  Age: 52 Year
  Sex: Female

DRUGS (1)
  1. AVANDIA [Suspect]
     Indication: DIABETES MELLITUS
     Dosage: 4MG PER DAY
     Route: 048
     Dates: start: 20010101, end: 20010101

REACTIONS (6)
  - PAIN IN EXTREMITY [None]
  - HEART RATE IRREGULAR [None]
  - PAIN IN JAW [None]
  - CARDIAC OPERATION [None]
  - CHEST PAIN [None]
  - CARDIAC FAILURE CONGESTIVE [None]
